FAERS Safety Report 17403509 (Version 3)
Quarter: 2020Q3

REPORT INFORMATION
  Report Type: Report from Study
  Country: AU (occurrence: AU)
  Receive Date: 20200211
  Receipt Date: 20200902
  Transmission Date: 20201102
  Serious: Yes (Hospitalization, Other)
  Sender: FDA-Public Use
  Company Number: AU-TOLMAR, INC.-19AU001126

PATIENT
  Age: 85 Year
  Sex: Male

DRUGS (5)
  1. AMOXIL [AMOXICILLIN] [Concomitant]
     Indication: PRODUCT USED FOR UNKNOWN INDICATION
     Route: 065
  2. COSUDEX [Concomitant]
     Active Substance: BICALUTAMIDE
     Indication: PRODUCT USED FOR UNKNOWN INDICATION
     Route: 065
  3. CRESTOR [Concomitant]
     Active Substance: ROSUVASTATIN CALCIUM
     Indication: PRODUCT USED FOR UNKNOWN INDICATION
     Route: 065
  4. RENITEC [ENALAPRILAT] [Concomitant]
     Active Substance: ENALAPRILAT
     Indication: PRODUCT USED FOR UNKNOWN INDICATION
     Route: 065
  5. ELIGARD [Suspect]
     Active Substance: LEUPROLIDE ACETATE
     Indication: PROSTATE CANCER
     Dosage: 22.5 MG, Q 3 MONTH
     Route: 058
     Dates: start: 20190507

REACTIONS (6)
  - Rib fracture [Not Recovered/Not Resolved]
  - Back pain [Not Recovered/Not Resolved]
  - Terminal state [Not Recovered/Not Resolved]
  - Hot flush [Not Recovered/Not Resolved]
  - Fall [Not Recovered/Not Resolved]
  - Constipation [Not Recovered/Not Resolved]

NARRATIVE: CASE EVENT DATE: 20190507
